FAERS Safety Report 5825451-X (Version None)
Quarter: 2008Q3

REPORT INFORMATION
  Report Type: 
  Country: None (occurrence: None)
  Receive Date: 20080725
  Receipt Date: 20080725
  Transmission Date: 20090109
  Serious: Yes (Other)
  Sender: FDA-Public Use
  Company Number: None

PATIENT
  Age: 64 Year
  Sex: Male
  Weight: 102.0593 kg

DRUGS (1)
  1. VYTORIN [Suspect]
     Indication: BLOOD CHOLESTEROL
     Dosage: ONE TABLET DAILY PO
     Route: 048
     Dates: start: 20060415, end: 20060520

REACTIONS (2)
  - ECZEMA [None]
  - HYPERKERATOSIS [None]
